FAERS Safety Report 4368218-4 (Version None)
Quarter: 2004Q2

REPORT INFORMATION
  Report Type: 
  Country: None (occurrence: None)
  Receive Date: 20040527
  Receipt Date: 20040514
  Transmission Date: 20050107
  Serious: Yes (Other)
  Sender: FDA-Public Use
  Company Number: 2004-UK-00463UK

PATIENT
  Sex: Female

DRUGS (3)
  1. TIOTROPIUM                (TIOTROPIUM BROMIDE) [Suspect]
     Indication: CHRONIC OBSTRUCTIVE AIRWAYS DISEASE
     Dosage: 18 MCG (NR, DAILY)
     Route: 055
     Dates: start: 20040323, end: 20040403
  2. SERETIDE [Concomitant]
  3. SALBUTAMOL (SALBUTAMOL) [Concomitant]

REACTIONS (14)
  - BRAIN OEDEMA [None]
  - DERMATITIS EXFOLIATIVE [None]
  - DRY SKIN [None]
  - DYSPNOEA [None]
  - ERYTHEMA [None]
  - EYE DISORDER [None]
  - FEELING HOT [None]
  - FORMICATION [None]
  - HEAT RASH [None]
  - INSOMNIA [None]
  - MASS [None]
  - PRURITUS [None]
  - SUNBURN [None]
  - SWELLING FACE [None]
